FAERS Safety Report 9613996 (Version 1)
Quarter: 2013Q4

REPORT INFORMATION
  Report Type: Spontaneous
  Country: CA (occurrence: CA)
  Receive Date: 20131011
  Receipt Date: 20131011
  Transmission Date: 20140711
  Serious: Yes (Hospitalization)
  Sender: FDA-Public Use
  Company Number: CA-ROCHE-1285932

PATIENT
  Age: 65 Year
  Sex: Female

DRUGS (13)
  1. XELODA [Suspect]
     Indication: PRODUCT USED FOR UNKNOWN INDICATION
     Dosage: THERAPY DURATION: 15 DAYS
     Route: 065
  2. TYKERB [Suspect]
     Indication: PRODUCT USED FOR UNKNOWN INDICATION
     Route: 048
  3. ADVAIR [Concomitant]
  4. DILTIAZEM [Concomitant]
  5. ENDOCET [Concomitant]
  6. FENTANYL [Concomitant]
     Route: 065
  7. GABAPENTIN [Concomitant]
  8. INSULIN [Concomitant]
  9. LYRICA [Concomitant]
  10. METFORMIN [Concomitant]
  11. PARIET [Concomitant]
     Route: 065
  12. PREDNISONE [Concomitant]
  13. SPIRIVA [Concomitant]

REACTIONS (10)
  - Breast cancer metastatic [Not Recovered/Not Resolved]
  - Dehydration [Not Recovered/Not Resolved]
  - Diarrhoea [Not Recovered/Not Resolved]
  - Kidney ablation [Not Recovered/Not Resolved]
  - Metastasis [Not Recovered/Not Resolved]
  - Nail growth abnormal [Not Recovered/Not Resolved]
  - Neoplasm progression [Not Recovered/Not Resolved]
  - Palmar-plantar erythrodysaesthesia syndrome [Not Recovered/Not Resolved]
  - Skin lesion [Not Recovered/Not Resolved]
  - Vomiting [Not Recovered/Not Resolved]
